FAERS Safety Report 5343457-4 (Version None)
Quarter: 2007Q2

REPORT INFORMATION
  Report Type: 
  Country: None (occurrence: None)
  Receive Date: 20070531
  Receipt Date: 20070327
  Transmission Date: 20071010
  Serious: Yes (Hospitalization, Other)
  Sender: FDA-Public Use
  Company Number: 2007VX001102

PATIENT
  Age: 63 Year
  Sex: Male
  Weight: 85 kg

DRUGS (2)
  1. FLURAZEPAM HYDROCHLORIDE [Suspect]
  2. ALCOHOL (ETHANOL) [Suspect]
     Dosage: ; PO
     Route: 048

REACTIONS (4)
  - ALCOHOL USE [None]
  - OVERDOSE [None]
  - SOMNOLENCE [None]
  - SUICIDE ATTEMPT [None]
